FAERS Safety Report 5875809-8 (Version None)
Quarter: 2008Q3

REPORT INFORMATION
  Report Type: 
  Country: None (occurrence: None)
  Receive Date: 20080908
  Receipt Date: 20080826
  Transmission Date: 20090109
  Serious: Yes (Hospitalization)
  Sender: FDA-Public Use
  Company Number: 2008BI022230

PATIENT
  Age: 36 Year
  Sex: Male

DRUGS (1)
  1. AVONEX [Suspect]
     Indication: MULTIPLE SCLEROSIS
     Dosage: 30 UG; QW; IM
     Route: 030
     Dates: start: 20080816, end: 20080905

REACTIONS (4)
  - CONTUSION [None]
  - DYSPNOEA [None]
  - FALL [None]
  - SKELETAL INJURY [None]
